FAERS Safety Report 8552517-6 (Version None)
Quarter: 2012Q3

REPORT INFORMATION
  Report Type: 
  Country: None (occurrence: None)
  Receive Date: 20120731
  Receipt Date: 20120723
  Transmission Date: 20120928
  Serious: Yes (Hospitalization)
  Sender: FDA-Public Use
  Company Number: JP-JNJFOC-20120712999

PATIENT
  Age: 80 Year
  Sex: Male
  Weight: 82 kg

DRUGS (6)
  1. IMIDAFENACIN [Concomitant]
     Route: 048
  2. HALCION [Concomitant]
     Route: 048
  3. XARELTO [Suspect]
     Indication: PRODUCT USED FOR UNKNOWN INDICATION
     Route: 048
     Dates: start: 20120611
  4. LENDORMIN [Concomitant]
     Route: 048
  5. OLMESARTAN MEDOXOMIL [Concomitant]
     Route: 048
  6. LIVALO [Concomitant]
     Route: 048

REACTIONS (2)
  - CEREBRAL ARTERY EMBOLISM [None]
  - CEREBRAL THROMBOSIS [None]
